FAERS Safety Report 14842554 (Version 1)
Quarter: 2018Q2

REPORT INFORMATION
  Report Type: Other
  Country: CO (occurrence: CO)
  Receive Date: 20180503
  Receipt Date: 20180503
  Transmission Date: 20180711
  Serious: Yes (Other)
  Sender: FDA-Public Use
  Company Number: CO-BD MEDICAL-2047121

PATIENT

DRUGS (1)
  1. BD E-Z SCRUB (CHLORHEXIDINE GLUCONATE) [Suspect]
     Active Substance: CHLORHEXIDINE GLUCONATE

REACTIONS (3)
  - Product lot number issue [None]
  - Product expiration date issue [Recovered/Resolved]
  - Product container issue [None]
